FAERS Safety Report 6992538-8 (Version None)
Quarter: 2010Q3

REPORT INFORMATION
  Report Type: 
  Country: None (occurrence: None)
  Receive Date: 20100917
  Receipt Date: 20100909
  Transmission Date: 20110219
  Serious: Yes (Death)
  Sender: FDA-Public Use
  Company Number: DE-ROCHE-720142

PATIENT
  Age: 61 Year
  Sex: Female
  Weight: 60 kg

DRUGS (4)
  1. CAPECITABINE [Suspect]
     Dosage: CYCLE 1 AND 2
     Route: 065
     Dates: start: 20070330
  2. CAPECITABINE [Suspect]
     Dosage: CYCLE 3 TO CYCLE 7
     Route: 065
  3. CAPECITABINE [Suspect]
     Dosage: CYCLE 8 TO 14
     Route: 065
     Dates: end: 20080124
  4. VINORELBIN [Suspect]
     Route: 065
     Dates: start: 20080219

REACTIONS (1)
  - MALIGNANT NEOPLASM PROGRESSION [None]
